FAERS Safety Report 6337415-0 (Version None)
Quarter: 2009Q3

REPORT INFORMATION
  Report Type: 
  Country: None (occurrence: None)
  Receive Date: 20090901
  Receipt Date: 20090901
  Transmission Date: 20100115
  Serious: Yes (Hospitalization)
  Sender: FDA-Public Use
  Company Number: None

PATIENT
  Sex: Male
  Weight: 65.5 kg

DRUGS (3)
  1. REYATAZ [Suspect]
     Indication: HIV INFECTION
  2. TRUVADA [Concomitant]
  3. NORVIR [Concomitant]

REACTIONS (1)
  - NEPHROLITHIASIS [None]
